FAERS Safety Report 26208972 (Version 1)
Quarter: 2025Q4

REPORT INFORMATION
  Report Type: Spontaneous
  Country: US (occurrence: None)
  Receive Date: 20251227
  Receipt Date: 20251227
  Transmission Date: 20260117
  Serious: Yes (Hospitalization)
  Sender: FDA-CTU
  Company Number: None

PATIENT
  Sex: Male

DRUGS (11)
  1. LENALIDOMIDE [Suspect]
     Active Substance: LENALIDOMIDE
     Indication: Plasma cell myeloma
     Dosage: AKE 1 CAPSULE (10 MG TOTAL) BY MOUTH IN THE MORNING. ON DAYS 1 - 21 OF A 28 DAY CYCLE.
     Route: 048
     Dates: start: 20241122
  2. ACETAMINOPHEN [Concomitant]
     Active Substance: ACETAMINOPHEN
  3. ASCORBIC AGO POW [Concomitant]
  4. ATORVASTATIN [Concomitant]
     Active Substance: ATORVASTATIN
  5. BIKTARVY [Concomitant]
     Active Substance: BICTEGRAVIR SODIUM\EMTRICITABINE\TENOFOVIR ALAFENAMIDE FUMARATE
  6. CALCIUM 600 TAB +D [Concomitant]
  7. DARZALEX  SOL [Concomitant]
  8. DEXAMETHASONE [Concomitant]
     Active Substance: DEXAMETHASONE
  9. ESCITALOPRAM [Concomitant]
     Active Substance: ESCITALOPRAM OXALATE
  10. GAVISCON  CHW EX-STR [Concomitant]
  11. IRON SLOW [Concomitant]

REACTIONS (2)
  - Pyrexia [None]
  - Therapy interrupted [None]
